FAERS Safety Report 16586594 (Version 2)
Quarter: 2019Q3

REPORT INFORMATION
  Report Type: Spontaneous
  Country: US (occurrence: US)
  Receive Date: 20190717
  Receipt Date: 20190822
  Transmission Date: 20191004
  Serious: Yes (Other)
  Sender: FDA-Public Use
  Company Number: US-PFIZER INC-2019301114

PATIENT
  Age: 72 Year
  Sex: Female

DRUGS (5)
  1. EUCRISA [Suspect]
     Active Substance: CRISABOROLE
     Indication: ECZEMA
  2. SEPTRA [Concomitant]
     Active Substance: SULFAMETHOXAZOLE\TRIMETHOPRIM
     Indication: SKIN ULCER
     Dosage: UNK
     Dates: start: 20190626, end: 20190705
  3. RIFAMPIN. [Concomitant]
     Active Substance: RIFAMPIN
     Indication: SKIN ULCER
     Dosage: 300 G, UNK
     Dates: start: 20190626, end: 20190705
  4. EUCRISA [Suspect]
     Active Substance: CRISABOROLE
     Indication: DERMATITIS ATOPIC
     Dosage: UNK, 2X/DAY, [60G TUBE]
     Route: 061
     Dates: start: 20190626, end: 20190627
  5. ELIQUIS [Concomitant]
     Active Substance: APIXABAN
     Indication: CARDIOVASCULAR DISORDER
     Dosage: UNK

REACTIONS (6)
  - Upper respiratory tract infection [Recovering/Resolving]
  - Swelling [Recovering/Resolving]
  - Anaphylactic reaction [Recovered/Resolved]
  - Pain in jaw [Recovering/Resolving]
  - Wheezing [Recovering/Resolving]
  - Dysphagia [Recovering/Resolving]

NARRATIVE: CASE EVENT DATE: 20190626
